FAERS Safety Report 16228976 (Version 1)
Quarter: 2019Q2

REPORT INFORMATION
  Report Type: Spontaneous
  Country: US (occurrence: US)
  Receive Date: 20190423
  Receipt Date: 20190423
  Transmission Date: 20190711
  Serious: Yes (Hospitalization, Other)
  Sender: FDA-Public Use
  Company Number: US-PFIZER INC-2019166856

PATIENT
  Age: 62 Year
  Sex: Male

DRUGS (2)
  1. VIAGRA [Suspect]
     Active Substance: SILDENAFIL CITRATE
     Dosage: 100 MG, UNK [100MG TABLET-1 TABLET TAKEN BY MOUTH 1 HOUR BEFORE SEXUAL ACTIVITY]
     Route: 048
  2. VIAGRA [Suspect]
     Active Substance: SILDENAFIL CITRATE
     Indication: ERECTILE DYSFUNCTION
     Dosage: 50 MG, UNK (50MG TABLET-1 TABLET TAKEN BY MOUTH 1 HOUR BEFORE SEXUAL ACTIVITY)
     Route: 048

REACTIONS (5)
  - Weight decreased [Recovering/Resolving]
  - Therapeutic product effect incomplete [Unknown]
  - Ulcer [Recovered/Resolved with Sequelae]
  - Skin ulcer [Recovering/Resolving]
  - Diabetic foot [Unknown]

NARRATIVE: CASE EVENT DATE: 2019
